FAERS Safety Report 4678250-9 (Version None)
Quarter: 2005Q2

REPORT INFORMATION
  Report Type: 
  Country: None (occurrence: None)
  Receive Date: 20050601
  Receipt Date: 20050519
  Transmission Date: 20051028
  Serious: Yes (Hospitalization)
  Sender: FDA-Public Use
  Company Number: 200511684FR

PATIENT
  Age: 65 Year
  Sex: Male
  Weight: 63 kg

DRUGS (11)
  1. LASIX [Suspect]
     Route: 048
  2. SPECIAFOLDINE [Suspect]
     Route: 048
  3. TOPALGIC [Suspect]
     Route: 048
     Dates: end: 20050404
  4. AMIKACIN [Suspect]
     Dates: start: 20050331, end: 20050404
  5. TAZOCILLINE [Suspect]
     Route: 042
     Dates: start: 20050331, end: 20050404
  6. TRIFLUCAN [Suspect]
     Dates: start: 20050331, end: 20050407
  7. PERFALGAN [Suspect]
  8. NEORECORMON [Suspect]
  9. CALCIDIA [Suspect]
     Route: 048
  10. TARDYFERON [Suspect]
     Route: 048
  11. DEPAKENE [Suspect]
     Dates: start: 20050404

REACTIONS (3)
  - BLOOD ALKALINE PHOSPHATASE INCREASED [None]
  - CHOLESTASIS [None]
  - GAMMA-GLUTAMYLTRANSFERASE INCREASED [None]
